FAERS Safety Report 5921192-9 (Version None)
Quarter: 2008Q4

REPORT INFORMATION
  Report Type: 
  Country: None (occurrence: None)
  Receive Date: 20081016
  Receipt Date: 20081009
  Transmission Date: 20090506
  Serious: No
  Sender: FDA-Public Use
  Company Number: US-B.I. PHARMACEUTICALS,INC./RIDGEFIELD-2008-BP-14284BP

PATIENT
  Sex: Female

DRUGS (11)
  1. SPIRIVA [Suspect]
     Indication: PULMONARY HYPERTENSION
     Dosage: 18MCG
     Route: 055
     Dates: start: 20070901
  2. SPIRIVA [Suspect]
     Indication: HYPERSENSITIVITY
  3. ULTRAM [Concomitant]
  4. LEVOTHYROXINE SODIUM [Concomitant]
  5. KLOR-CON [Concomitant]
  6. LISINOPRIL [Concomitant]
     Indication: HYPERTENSION
  7. LIPITOR [Concomitant]
  8. LORAZEPAM [Concomitant]
  9. LYRICA [Concomitant]
  10. TRAMADOL HYDROCHLORIDE AND ACETAMINOPHEN [Concomitant]
  11. ADVAIR DISKUS 100/50 [Concomitant]

REACTIONS (2)
  - DRUG INEFFECTIVE [None]
  - WHEEZING [None]
